FAERS Safety Report 21244848 (Version 4)
Quarter: 2022Q4

REPORT INFORMATION
  Report Type: Spontaneous
  Country: US (occurrence: US)
  Receive Date: 20220823
  Receipt Date: 20221014
  Transmission Date: 20230113
  Serious: Yes (Other)
  Sender: FDA-Public Use
  Company Number: US-PFIZER INC-PV202200040967

PATIENT
  Age: 57 Year
  Sex: Female
  Weight: 111.5 kg

DRUGS (1)
  1. XELJANZ XR [Suspect]
     Active Substance: TOFACITINIB CITRATE
     Dosage: 11 MG, DAILY
     Route: 048
     Dates: end: 202206

REACTIONS (5)
  - Spinal operation [Unknown]
  - Postoperative wound infection [Not Recovered/Not Resolved]
  - Infection [Not Recovered/Not Resolved]
  - COVID-19 [Unknown]
  - Pain [Unknown]

NARRATIVE: CASE EVENT DATE: 20220101
